FAERS Safety Report 4274612-2 (Version None)
Quarter: 2004Q1

REPORT INFORMATION
  Report Type: 
  Country: None (occurrence: None)
  Receive Date: 20040115
  Receipt Date: 20040105
  Transmission Date: 20041129
  Serious: Yes (Hospitalization)
  Sender: FDA-Public Use
  Company Number: 2004CG00050

PATIENT
  Age: 62 Year
  Sex: Female

DRUGS (15)
  1. MOPRAL [Suspect]
     Dosage: 20 MG QD PO
     Route: 048
     Dates: start: 20020408
  2. MOPRAL [Suspect]
     Dosage: 40 MG QD IV
     Route: 042
     Dates: start: 20020408
  3. AREDIA [Suspect]
     Dosage: 90 MG MONTH IV
     Route: 042
     Dates: start: 20020213, end: 20021107
  4. AREDIA [Suspect]
     Dosage: 90 MG ONCE IV
     Route: 042
     Dates: start: 20030306, end: 20030306
  5. ZOMETA [Suspect]
     Dosage: 4 MG MONTH IV
     Route: 042
     Dates: start: 20021107
  6. COSOPT [Suspect]
     Indication: GLAUCOMA
     Dates: start: 20011123, end: 20030101
  7. ADRIAMYCIN PFS [Concomitant]
  8. DEXAMETHASONE [Concomitant]
  9. ENDOXAN [Concomitant]
  10. DURAGESIC [Concomitant]
  11. TRIFLUCAN [Concomitant]
  12. VITAMIN B1 AND B6 [Concomitant]
  13. SPECIAFOLDINE [Concomitant]
  14. OPHTIM [Concomitant]
  15. ALKERAN [Concomitant]

REACTIONS (11)
  - AGITATION [None]
  - ANOREXIA [None]
  - ANTEROGRADE AMNESIA [None]
  - BLOOD CALCIUM DECREASED [None]
  - GLAUCOMA [None]
  - HALLUCINATION [None]
  - RENAL FAILURE [None]
  - RETROGRADE AMNESIA [None]
  - VOMITING [None]
  - WEIGHT DECREASED [None]
  - WERNICKE'S ENCEPHALOPATHY [None]
